FAERS Safety Report 9587410 (Version 1)
Quarter: 2013Q4

REPORT INFORMATION
  Report Type: Spontaneous
  Country: MX (occurrence: MX)
  Receive Date: 20131003
  Receipt Date: 20131003
  Transmission Date: 20140711
  Serious: Yes (Other)
  Sender: FDA-Public Use
  Company Number: MX-PFIZER INC-2013283009

PATIENT
  Age: 40 Year
  Sex: Male

DRUGS (1)
  1. VARENICLINE TARTRATE [Suspect]

REACTIONS (1)
  - Drug dependence [Unknown]
